FAERS Safety Report 19158720 (Version 3)
Quarter: 2021Q4

REPORT INFORMATION
  Report Type: Spontaneous
  Country: US (occurrence: US)
  Receive Date: 20210420
  Receipt Date: 20211028
  Transmission Date: 20220303
  Serious: Yes (Hospitalization)
  Sender: FDA-Public Use
  Company Number: US-KARYOPHARM-2021KPT000319

PATIENT

DRUGS (3)
  1. XPOVIO [Suspect]
     Active Substance: SELINEXOR
     Indication: Plasma cell myeloma
     Dosage: 80 MG, WEEKLY
     Route: 048
     Dates: start: 20210211, end: 202103
  2. XPOVIO [Suspect]
     Active Substance: SELINEXOR
     Dosage: UNK
     Dates: start: 202103
  3. CANNABIDIOL\HERBALS [Concomitant]
     Active Substance: CANNABIDIOL\HERBALS
     Indication: Product used for unknown indication

REACTIONS (7)
  - Headache [Unknown]
  - Abdominal pain upper [Unknown]
  - Dyspnoea [Unknown]
  - Night sweats [Recovered/Resolved]
  - Bone pain [Unknown]
  - Constipation [Not Recovered/Not Resolved]
  - Diarrhoea [Recovered/Resolved]

NARRATIVE: CASE EVENT DATE: 20210301
